FAERS Safety Report 5104389-X (Version None)
Quarter: 2006Q3

REPORT INFORMATION
  Report Type: 
  Country: None (occurrence: None)
  Receive Date: 20060908
  Receipt Date: 20060908
  Transmission Date: 20061208
  Serious: Yes (Other)
  Sender: FDA-Public Use
  Company Number: None

PATIENT
  Age: 54 Year
  Sex: Female
  Weight: 77.1115 kg

DRUGS (12)
  1. RISPERIDONE [Suspect]
     Indication: BIPOLAR DISORDER
     Dosage: 0.5MG   BID   PO
     Route: 048
     Dates: start: 20060808, end: 20060815
  2. ACETAMINOPHEN [Concomitant]
  3. ATENOLOL [Concomitant]
  4. LEVOTHYROXINE SODIUM [Concomitant]
  5. LISINOPRIL [Concomitant]
  6. MAALOX FAST BLOCKER [Concomitant]
  7. MILK OF MAGNESIA TAB [Concomitant]
  8. PHENYTOIN [Concomitant]
  9. PROMETHAZINE [Concomitant]
  10. QUETIAPINE [Concomitant]
  11. VALPROIC ACID [Concomitant]
  12. SERTRALINE [Concomitant]

REACTIONS (2)
  - HYPOTENSION [None]
  - LOSS OF CONSCIOUSNESS [None]
